FAERS Safety Report 7743852-X (Version None)
Quarter: 2011Q3

REPORT INFORMATION
  Report Type: 
  Country: None (occurrence: None)
  Receive Date: 20110912
  Receipt Date: 20110831
  Transmission Date: 20111222
  Serious: Yes (Death)
  Sender: FDA-Public Use
  Company Number: US-GLAXOSMITHKLINE-A0898426A

PATIENT
  Age: 74 Year
  Sex: Female

DRUGS (7)
  1. AVANDIA [Suspect]
     Indication: DIABETES MELLITUS
     Dosage: 4MG AT NIGHT
     Route: 048
     Dates: start: 20020617, end: 20030101
  2. INSULIN [Concomitant]
  3. LOTENSIN [Concomitant]
  4. VOLTAREN [Concomitant]
  5. EFFEXOR [Concomitant]
  6. LESCOL [Concomitant]
  7. LORTAB [Concomitant]

REACTIONS (3)
  - CARDIAC FAILURE CONGESTIVE [None]
  - ARRHYTHMIA [None]
  - CARDIOVASCULAR DISORDER [None]
